FAERS Safety Report 24042262 (Version 1)
Quarter: 2024Q3

REPORT INFORMATION
  Report Type: Report from Study
  Country: IE (occurrence: IE)
  Receive Date: 20240702
  Receipt Date: 20240702
  Transmission Date: 20241016
  Serious: Yes (Death)
  Sender: TAKEDA
  Company Number: IE-TAKEDA-2024TUS065274

PATIENT

DRUGS (1)
  1. COLCHICINE [Suspect]
     Active Substance: COLCHICINE
     Indication: Cerebrovascular accident
     Dosage: 0.5 MILLIGRAM, QD
     Route: 048

REACTIONS (1)
  - Neoplasm malignant [Fatal]
